FAERS Safety Report 4689364-1 (Version None)
Quarter: 2005Q2

REPORT INFORMATION
  Report Type: 
  Country: None (occurrence: None)
  Receive Date: 20050608
  Receipt Date: 20050216
  Transmission Date: 20051028
  Serious: No
  Sender: FDA-Public Use
  Company Number: 2005-BP-01168BP

PATIENT
  Age: 65 Year
  Sex: Female

DRUGS (8)
  1. SPIRIVA [Suspect]
     Indication: CHRONIC OBSTRUCTIVE PULMONARY DISEASE
     Dosage: 18 MCG (18 MCG, 1 IN 1 D), IH
     Route: 055
     Dates: start: 20050101
  2. SPIRIVA [Suspect]
     Indication: PULMONARY CONGESTION
     Dosage: 18 MCG (18 MCG, 1 IN 1 D), IH
     Route: 055
     Dates: start: 20050101
  3. FIORINAL [Concomitant]
  4. MIACALCIN [Concomitant]
  5. SINGULAIR (MONTELUKAST) [Concomitant]
  6. TAVIST [Concomitant]
  7. DIOVAN [Concomitant]
  8. PREVACID [Concomitant]

REACTIONS (2)
  - MYALGIA [None]
  - PAIN IN EXTREMITY [None]
